FAERS Safety Report 23868093 (Version 1)
Quarter: 2024Q2

REPORT INFORMATION
  Report Type: Spontaneous
  Country: KE (occurrence: None)
  Receive Date: 20240517
  Receipt Date: 20240517
  Transmission Date: 20240716
  Serious: Yes (Death)
  Sender: FDA-Public Use
  Company Number: 2024A115730

PATIENT
  Age: 17226 Day
  Sex: Male

DRUGS (1)
  1. TAGRISSO [Suspect]
     Active Substance: OSIMERTINIB
     Indication: Non-small cell lung cancer
     Dosage: 80.0MG ONCE/SINGLE ADMINISTRATION
     Route: 048
     Dates: start: 20240320

REACTIONS (2)
  - Vomiting [Fatal]
  - Death [Fatal]

NARRATIVE: CASE EVENT DATE: 20240511
